FAERS Safety Report 8297827 (Version 6)
Quarter: 2013Q1

REPORT INFORMATION
  Report Type: Spontaneous
  Country: JP (occurrence: JP)
  Receive Date: 20111219
  Receipt Date: 20130215
  Transmission Date: 20140127
  Serious: Yes (Other)
  Sender: FDA-Public Use
  Company Number: JP-JNJFOC-20111204371

PATIENT
  Sex: Female

DRUGS (10)
  1. REMICADE [Suspect]
     Indication: CROHN^S DISEASE
     Route: 042
     Dates: start: 20090319
  2. REMICADE [Suspect]
     Indication: CROHN^S DISEASE
     Route: 042
     Dates: start: 201101
  3. REMICADE [Suspect]
     Indication: CROHN^S DISEASE
     Route: 042
     Dates: start: 201011
  4. REMICADE [Suspect]
     Indication: CROHN^S DISEASE
     Route: 042
     Dates: start: 20100918
  5. REMICADE [Suspect]
     Indication: CROHN^S DISEASE
     Route: 042
     Dates: start: 20100204
  6. GASTER D [Suspect]
     Indication: PRODUCT USED FOR UNKNOWN INDICATION
     Route: 048
     Dates: start: 200909, end: 20101022
  7. ALFAROL [Suspect]
     Indication: OSTEOPOROSIS
     Route: 048
     Dates: start: 201009, end: 20101022
  8. AMOBAN [Concomitant]
     Route: 048
     Dates: start: 2008
  9. RIZE [Concomitant]
     Route: 048
     Dates: start: 2008
  10. SULPIRIDE [Concomitant]
     Route: 048
     Dates: start: 2008

REACTIONS (1)
  - Pemphigoid [Recovering/Resolving]
